FAERS Safety Report 9981784 (Version 1)
Quarter: 2014Q1

REPORT INFORMATION
  Report Type: Report from Study
  Country: US (occurrence: US)
  Receive Date: 20140307
  Receipt Date: 20140307
  Transmission Date: 20141002
  Serious: No
  Sender: FDA-Public Use
  Company Number: US-ABBVIE-13P-163-1177784-00

PATIENT
  Age: 36 Year
  Sex: Female

DRUGS (10)
  1. HUMIRA [Suspect]
     Indication: CROHN^S DISEASE
     Dates: start: 20131112, end: 20131112
  2. HUMIRA [Suspect]
     Dates: start: 20131126, end: 20131126
  3. HUMIRA [Suspect]
  4. PROGRAF [Concomitant]
     Indication: PROPHYLAXIS AGAINST TRANSPLANT REJECTION
  5. IMURAN [Concomitant]
     Indication: PROPHYLAXIS AGAINST TRANSPLANT REJECTION
  6. PREDNISONE [Concomitant]
     Indication: CROHN^S DISEASE
  7. PREDNISONE [Concomitant]
  8. MAGNESIUM [Concomitant]
     Indication: PRODUCT USED FOR UNKNOWN INDICATION
  9. MULTIVITAMIN [Concomitant]
     Indication: PRODUCT USED FOR UNKNOWN INDICATION
  10. INTEGRA [Concomitant]
     Indication: ANAEMIA

REACTIONS (1)
  - Capillary fragility [Not Recovered/Not Resolved]
